FAERS Safety Report 23135842 (Version 1)
Quarter: 2023Q4

REPORT INFORMATION
  Report Type: Report from Study
  Country: LB (occurrence: LB)
  Receive Date: 20231101
  Receipt Date: 20231101
  Transmission Date: 20240110
  Serious: Yes (Hospitalization, Other)
  Sender: FDA-Public Use
  Company Number: LB-ABBVIE-4709324

PATIENT
  Age: 36 Year
  Sex: Female
  Weight: 84 kg

DRUGS (6)
  1. RINVOQ [Suspect]
     Active Substance: UPADACITINIB
     Indication: Rheumatoid arthritis
     Dosage: STRENGTH: 15 MILLIGRAM
     Route: 048
     Dates: start: 20220215, end: 20220410
  2. RINVOQ [Suspect]
     Active Substance: UPADACITINIB
     Indication: Rheumatoid arthritis
     Dosage: 15 MILLIGRAM
     Route: 048
     Dates: start: 20220908, end: 20221008
  3. RINVOQ [Suspect]
     Active Substance: UPADACITINIB
     Indication: Rheumatoid arthritis
     Dosage: STRENGTH: 15 MILLIGRAM
     Route: 048
     Dates: start: 20220416, end: 20220719
  4. RINVOQ [Suspect]
     Active Substance: UPADACITINIB
     Indication: Rheumatoid arthritis
     Dosage: STOP DATE TEXT: LAST WEEK OF FEB 2023?15 MILLIGRAM
     Route: 048
     Dates: start: 20230114
  5. Dianorm [Concomitant]
     Indication: Diabetes mellitus
     Dosage: 3 PILS?FORM STRENGTH: 100 MILLIGRAM
     Dates: start: 2019
  6. FOLIC ACID [Concomitant]
     Active Substance: FOLIC ACID
     Indication: Pregnancy
     Dosage: FREQUENCY TEXT: DAILY
     Dates: start: 2023, end: 2023

REACTIONS (5)
  - Amniorrhoea [Unknown]
  - Maternal exposure during pregnancy [Unknown]
  - Rheumatoid arthritis [Not Recovered/Not Resolved]
  - Abortion spontaneous [Unknown]
  - Foetal malposition [Unknown]

NARRATIVE: CASE EVENT DATE: 20230101
